FAERS Safety Report 25961656 (Version 2)
Quarter: 2025Q4

REPORT INFORMATION
  Report Type: Spontaneous
  Country: EU (occurrence: EU)
  Receive Date: 20251027
  Receipt Date: 20251112
  Transmission Date: 20260117
  Serious: Yes (Other)
  Sender: AUROBINDO
  Company Number: EU-002147023-PHBS2006FR16001

PATIENT
  Age: 18 Year
  Sex: Female

DRUGS (3)
  1. IMATINIB [Suspect]
     Active Substance: IMATINIB
     Indication: Philadelphia positive chronic myeloid leukaemia
     Dosage: 400 MILLIGRAM, ONCE A DAY (400 MG, QD)
     Route: 048
     Dates: start: 200403
  2. IMATINIB [Suspect]
     Active Substance: IMATINIB
     Dosage: UNK
     Route: 048
     Dates: start: 20040720
  3. PREDNISONE [Concomitant]
     Active Substance: PREDNISONE
     Indication: Product used for unknown indication
     Dosage: 30 MILLIGRAM
     Route: 065
     Dates: start: 20040720

REACTIONS (4)
  - Aspartate aminotransferase increased [Recovered/Resolved]
  - Alanine aminotransferase increased [Recovered/Resolved]
  - Gamma-glutamyltransferase increased [Recovered/Resolved]
  - Autoimmune hepatitis [Recovered/Resolved]
